FAERS Safety Report 4953777-0 (Version None)
Quarter: 2006Q1

REPORT INFORMATION
  Report Type: 
  Country: None (occurrence: None)
  Receive Date: 20060324
  Receipt Date: 20060324
  Transmission Date: 20060701
  Serious: Yes (Hospitalization)
  Sender: FDA-Public Use
  Company Number: None

PATIENT
  Age: 56 Year
  Sex: Male
  Weight: 63 kg

DRUGS (3)
  1. OXALIPLATIN 130 MG/M2 IV DAY 1 [Suspect]
     Indication: GALLBLADDER CANCER
     Dosage: 222 MG Q 3 WK IV
     Route: 042
     Dates: start: 20060309
  2. OXALIPLATIN 130 MG/M2 IV DAY 1 [Suspect]
     Indication: METASTASES TO LIVER
     Dosage: 222 MG Q 3 WK IV
     Route: 042
     Dates: start: 20060309
  3. CAPECITABINE 1500 MG/M2 PO X 14 DAYS [Suspect]
     Dosage: 2500 PO QD D1-14
     Dates: start: 20060309, end: 20060322

REACTIONS (1)
  - CHOLANGITIS [None]
